FAERS Safety Report 21128381 (Version 3)
Quarter: 2022Q4

REPORT INFORMATION
  Report Type: Spontaneous
  Country: US (occurrence: US)
  Receive Date: 20220725
  Receipt Date: 20221004
  Transmission Date: 20230112
  Serious: No
  Sender: FDA-Public Use
  Company Number: US-TAKEDA-2022TUS048382

PATIENT

DRUGS (3)
  1. PROTONIX [Suspect]
     Active Substance: PANTOPRAZOLE SODIUM
     Dosage: UNK
     Route: 065
  2. DEXILANT [Suspect]
     Active Substance: DEXLANSOPRAZOLE
     Indication: Gastrooesophageal reflux disease
     Dosage: UNK
     Route: 065
  3. FAMOTIDINE [Suspect]
     Active Substance: FAMOTIDINE
     Dosage: UNK
     Route: 065

REACTIONS (1)
  - Drug ineffective [Unknown]
